FAERS Safety Report 13257626 (Version 1)
Quarter: 2017Q1

REPORT INFORMATION
  Report Type: Spontaneous
  Country: US (occurrence: US)
  Receive Date: 20170221
  Receipt Date: 20170221
  Transmission Date: 20170428
  Serious: No
  Sender: FDA-Public Use
  Company Number: US-LANTHEUS-LMI-2016-00282

PATIENT
  Age: 63 Year
  Sex: Female
  Weight: 74 kg

DRUGS (1)
  1. DEFINITY [Suspect]
     Active Substance: PERFLUTREN
     Indication: STRESS ECHOCARDIOGRAM
     Dosage: 1 ML, SINGLE
     Route: 040
     Dates: start: 20160524, end: 20160524

REACTIONS (10)
  - Blood glucose increased [Unknown]
  - Paraesthesia [Unknown]
  - Dizziness [Unknown]
  - Feeling hot [Unknown]
  - Heart rate increased [Unknown]
  - Rash [Unknown]
  - Back pain [Unknown]
  - Blood pressure decreased [Unknown]
  - Dyspnoea [Unknown]
  - Nausea [Unknown]

NARRATIVE: CASE EVENT DATE: 20160524
